FAERS Safety Report 14398521 (Version 2)
Quarter: 2018Q1

REPORT INFORMATION
  Report Type: Spontaneous
  Country: GR (occurrence: GR)
  Receive Date: 20180116
  Receipt Date: 20180308
  Transmission Date: 20180509
  Serious: Yes (Other)
  Sender: FDA-Public Use
  Company Number: GR-TEVA-2018-GR-843419

PATIENT
  Age: 62 Year
  Sex: Female

DRUGS (29)
  1. TAMOXIFEN CITRATE. [Suspect]
     Active Substance: TAMOXIFEN CITRATE
     Indication: BREAST CANCER METASTATIC
     Dosage: 1-EVERY CYCLE, REGIMEN#1, COMBINATION WITH TRASTUZUMAB
     Route: 048
     Dates: start: 2009
  2. TRASTUZUMAB. [Suspect]
     Active Substance: TRASTUZUMAB
     Indication: BREAST CANCER METASTATIC
     Dosage: 1-EVERY CYCLE, COMBINATION WITH FULVESTRANT
     Route: 065
     Dates: start: 2009
  3. PACLITAXEL. [Suspect]
     Active Substance: PACLITAXEL
     Indication: BREAST CANCER METASTATIC
     Dosage: 1 - EVERY CYCLE, REGIMEN#1
     Route: 065
     Dates: start: 2006
  4. ERIBULIN [Suspect]
     Active Substance: ERIBULIN
     Indication: BREAST CANCER METASTATIC
     Dosage: REGIMEN#1, COMBINATION WITH TRASTUZUMAB, 1 - EVERY CYCLE
     Route: 065
     Dates: start: 2009
  5. TRASTUZUMAB. [Suspect]
     Active Substance: TRASTUZUMAB
     Dosage: 1-EVERY CYCLE, COMBINATION WITH ERIBULIN
     Route: 065
     Dates: start: 2009
  6. TRASTUZUMAB. [Suspect]
     Active Substance: TRASTUZUMAB
     Dosage: 1-EVERY CYCLE, COMBINATION WITH CAPECITABINE
     Route: 065
     Dates: start: 2009
  7. CAPECITABINE. [Suspect]
     Active Substance: CAPECITABINE
     Indication: BREAST CANCER METASTATIC
     Dosage: REGIMEN#1, COMBINATION WITH LAPATINIB, 1 - EVERY CYCLE
     Route: 065
     Dates: start: 2009
  8. EXEMESTANE. [Suspect]
     Active Substance: EXEMESTANE
     Indication: BREAST CANCER METASTATIC
     Dosage: COMBINATION WITH TRASTZUMAB AND EVEROLIMUS, 1- EVERY CYCLE
     Route: 065
     Dates: start: 2009
  9. LAPATINIB [Suspect]
     Active Substance: LAPATINIB
     Indication: BREAST CANCER METASTATIC
     Dosage: 1 - EVERY CYCLE, REGIMEN#1, COMBINATION WITH CAPECITABINE
     Route: 065
     Dates: start: 2009
  10. TRASTUZUMAB. [Suspect]
     Active Substance: TRASTUZUMAB
     Dosage: 1-EVERY CYCLE, COMBINATION WITH TAMOXIFEN
     Route: 065
     Dates: start: 2009
  11. TRASTUZUMAB. [Suspect]
     Active Substance: TRASTUZUMAB
     Dosage: 1-EVERY CYCLE, REGIMEN#1
     Route: 065
     Dates: start: 2009
  12. CARBOPLATIN. [Suspect]
     Active Substance: CARBOPLATIN
     Indication: RECURRENT CANCER
  13. METHOTREXATE SODIUM. [Suspect]
     Active Substance: METHOTREXATE SODIUM
     Indication: BREAST CANCER METASTATIC
     Dosage: REGIMEN #1
     Route: 065
     Dates: start: 2006
  14. TRASTUZUMAB. [Suspect]
     Active Substance: TRASTUZUMAB
     Dosage: 1-EVERY CYCLE, COMBINATION WITH LIPOSOMAL DOXORUBICIN HCL
     Route: 065
     Dates: start: 2009
  15. FLUOROURACIL. [Suspect]
     Active Substance: FLUOROURACIL
     Indication: BREAST CANCER METASTATIC
     Dosage: 1-EVERY CYCLE, REGIMEN#1
     Route: 065
     Dates: start: 2006
  16. VINORELBINE [Suspect]
     Active Substance: VINORELBINE\VINORELBINE TARTRATE
     Indication: BREAST CANCER METASTATIC
     Dosage: 1-EVERY CYCLE, REGIMEN#1, COMBINATION WITH TRASTUZUMAB
     Route: 065
     Dates: start: 2009
  17. CYCLOPHOSPHAMIDE. [Suspect]
     Active Substance: CYCLOPHOSPHAMIDE
     Indication: BREAST CANCER METASTATIC
     Route: 065
  18. ENDOXAN [Suspect]
     Active Substance: CYCLOPHOSPHAMIDE
     Dosage: 1 - EVERY CYCLE REGIMEN#1
     Route: 065
  19. LIPOSOMAL DOXORUBICIN HYDROCHLORIDE [Suspect]
     Active Substance: DOXORUBICIN HYDROCHLORIDE
     Indication: BREAST CANCER METASTATIC
     Dosage: 1 - EVERY CYCLE, REGIMEN#1, COMBINATION WITH TRASTUZUMAB
     Route: 065
     Dates: start: 2009
  20. GEMCITABINE HYDROCHLORIDE. [Suspect]
     Active Substance: GEMCITABINE HYDROCHLORIDE
     Indication: BREAST CANCER METASTATIC
     Dosage: 1 - EVERY CYCLE, COMBINATION WITH TRASTUZUMAB AND CARBOPLATIN
     Route: 065
     Dates: start: 2009
  21. EPIRUBICIN [Suspect]
     Active Substance: EPIRUBICIN
     Indication: BREAST CANCER METASTATIC
     Dosage: 1 - EVERY CYCLE, REGIMEN#1
     Route: 065
     Dates: start: 2006
  22. DOCETAXEL. [Suspect]
     Active Substance: DOCETAXEL
     Indication: BREAST CANCER METASTATIC
     Dosage: 1 - EVERY CYCLE, REGIMEN#1
     Route: 065
     Dates: start: 2009
  23. TRASTUZUMAB. [Suspect]
     Active Substance: TRASTUZUMAB
     Dosage: 1-EVERY CYCLE, COMBINATION WITH GEMCITABINE AND CARBOPLATIN
     Route: 065
     Dates: start: 2009
  24. CAPECITABINE. [Suspect]
     Active Substance: CAPECITABINE
     Dosage: COMBINATION WITH TRASTUZUMAB
     Route: 065
     Dates: start: 2009
  25. FULVESTRANT. [Suspect]
     Active Substance: FULVESTRANT
     Indication: BREAST CANCER METASTATIC
     Dosage: 1 - EVERY CYCLE, REGIMEN#1, COMBINATION WITH TRASTUZUMAB, 1 - EVERY CYCLE
     Route: 030
     Dates: start: 2009
  26. EVEROLIMUS. [Suspect]
     Active Substance: EVEROLIMUS
     Indication: BREAST CANCER METASTATIC
     Dosage: 1 - EVERY CYCLE, REGIMEN#1, COMBINATION WITH TRASTZUMAB AND EXEMESTANE
     Route: 065
     Dates: start: 2009
  27. TRASTUZUMAB EMTANSINE [Suspect]
     Active Substance: ADO-TRASTUZUMAB EMTANSINE
     Indication: BREAST CANCER METASTATIC
     Dosage: 1 - EVERY CYCLE, REGIMEN#1
     Route: 065
     Dates: start: 2009
  28. CARBOPLATIN. [Suspect]
     Active Substance: CARBOPLATIN
     Indication: BREAST CANCER METASTATIC
     Dosage: 1 - EVERY CYCLE, COMBINATION WITH TRASTUZUMAB AND GEMCITABINE
     Route: 065
     Dates: start: 2009
  29. TRASTUZUMAB. [Suspect]
     Active Substance: TRASTUZUMAB
     Dosage: 1-EVERY CYCLE, COMBINATION WITH EXEMESTANE AND EVEROLIMUS, 1-EVERY CYCLE
     Route: 065
     Dates: start: 2009

REACTIONS (8)
  - Metastases to lung [Unknown]
  - Metastases to skin [Unknown]
  - Skin mass [Unknown]
  - Metastases to lymph nodes [Unknown]
  - Malignant neoplasm progression [Unknown]
  - Metastases to bone [Unknown]
  - Oestrogen receptor positive breast cancer [Unknown]
  - Recurrent cancer [Unknown]

NARRATIVE: CASE EVENT DATE: 2009
